FAERS Safety Report 19856171 (Version 1)
Quarter: 2021Q3

REPORT INFORMATION
  Report Type: Spontaneous
  Country: FR (occurrence: FR)
  Receive Date: 20210920
  Receipt Date: 20210920
  Transmission Date: 20211014
  Serious: Yes (Hospitalization)
  Sender: FDA-Public Use
  Company Number: FR-TEVA-2021-FR-1953694

PATIENT
  Age: 61 Year
  Sex: Male
  Weight: 60 kg

DRUGS (6)
  1. DEPAKOTE [Concomitant]
     Active Substance: DIVALPROEX SODIUM
  2. VENLAFAXINE [Concomitant]
     Active Substance: VENLAFAXINE HYDROCHLORIDE
  3. QUETIAPINE. [Suspect]
     Active Substance: QUETIAPINE
     Indication: PERSISTENT DEPRESSIVE DISORDER
     Dosage: 300 MG
     Route: 048
     Dates: start: 20210810, end: 20210816
  4. LEVOTHYROX [Concomitant]
     Active Substance: LEVOTHYROXINE
  5. PREGABALINE [Concomitant]
     Active Substance: PREGABALIN
  6. BUSPIRONE (CHLORHYDRATE DE) [Concomitant]
     Active Substance: BUSPIRONE HYDROCHLORIDE

REACTIONS (1)
  - Purpura [Not Recovered/Not Resolved]

NARRATIVE: CASE EVENT DATE: 20210816
